APPROVED DRUG PRODUCT: CETIRIZINE HYDROCHLORIDE
Active Ingredient: CETIRIZINE HYDROCHLORIDE
Strength: 5MG/5ML
Dosage Form/Route: SOLUTION;ORAL
Application: A077279 | Product #001
Applicant: TEVA PHARMACEUTICALS USA
Approved: May 27, 2008 | RLD: No | RS: No | Type: DISCN